FAERS Safety Report 21446656 (Version 1)
Quarter: 2022Q4

REPORT INFORMATION
  Report Type: Spontaneous
  Country: US (occurrence: US)
  Receive Date: 20221012
  Receipt Date: 20221012
  Transmission Date: 20230113
  Serious: No
  Sender: FDA-Public Use
  Company Number: US-PFIZER INC-202201218476

PATIENT
  Age: 70 Year
  Sex: Female

DRUGS (4)
  1. BOSULIF [Suspect]
     Active Substance: BOSUTINIB MONOHYDRATE
     Indication: Myeloid leukaemia
     Dosage: 500 MG, 1X/DAY
     Dates: end: 2022
  2. LYRICA [Concomitant]
     Active Substance: PREGABALIN
     Indication: Neuropathy peripheral
     Dosage: 100 MG (UNKNOWN HOW OFTEN TAKEN)
  3. CELECOXIB [Concomitant]
     Active Substance: CELECOXIB
     Indication: Pain
     Dosage: 50 MG, 2X/DAY
  4. HYDROXYCHLOROQUINE [Concomitant]
     Active Substance: HYDROXYCHLOROQUINE
     Dosage: 200 MG, 2X/DAY

REACTIONS (1)
  - Diarrhoea [Recovered/Resolved]
